FAERS Safety Report 20630830 (Version 3)
Quarter: 2022Q3

REPORT INFORMATION
  Report Type: Spontaneous
  Country: JP (occurrence: JP)
  Receive Date: 20220324
  Receipt Date: 20220909
  Transmission Date: 20221027
  Serious: Yes (Other)
  Sender: FDA-Public Use
  Company Number: JP-JNJFOC-20220350388

PATIENT
  Age: 67 Year
  Sex: Female
  Weight: 52 kg

DRUGS (4)
  1. TREMFYA [Suspect]
     Active Substance: GUSELKUMAB
     Indication: Palmoplantar pustulosis
     Dosage: EVERY 4 TO 8 WEEKS
     Route: 058
     Dates: start: 20210707
  2. TREMFYA [Suspect]
     Active Substance: GUSELKUMAB
  3. TREMFYA [Suspect]
     Active Substance: GUSELKUMAB
  4. DIFLORASONE DIACETATE [Concomitant]
     Active Substance: DIFLORASONE DIACETATE
     Indication: Product used for unknown indication
     Dosage: DOSE UNKNOWN
     Route: 062

REACTIONS (2)
  - Pulmonary tuberculosis [Unknown]
  - Hepatic function abnormal [Recovered/Resolved]

NARRATIVE: CASE EVENT DATE: 20220128
